FAERS Safety Report 18188308 (Version 2)
Quarter: 2020Q3

REPORT INFORMATION
  Report Type: Report from Study
  Country: GB (occurrence: GB)
  Receive Date: 20200824
  Receipt Date: 20200827
  Transmission Date: 20201103
  Serious: Yes (Death, Hospitalization)
  Sender: FDA-Public Use
  Company Number: GB-PFIZER INC-2020322129

PATIENT
  Age: 63 Year
  Sex: Male
  Weight: 95.2 kg

DRUGS (9)
  1. CRIZOTINIB [Suspect]
     Active Substance: CRIZOTINIB
     Dosage: 250 MG, 2X/DAY
     Route: 048
     Dates: start: 20200728, end: 20200817
  2. BISOPROLOL [Concomitant]
     Active Substance: BISOPROLOL
     Indication: HYPERTENSION
     Dosage: 1.2 MG, 1X/DAY
     Route: 048
     Dates: start: 20170308, end: 20200818
  3. VEDOLIZUMAB [Concomitant]
     Active Substance: VEDOLIZUMAB
     Indication: CROHN^S DISEASE
     Dosage: EVERY 4 WEEKS SC
     Route: 042
     Dates: start: 201902, end: 20200807
  4. CREON [Concomitant]
     Active Substance: PANCRELIPASE AMYLASE\PANCRELIPASE LIPASE\PANCRELIPASE PROTEASE
     Indication: ENZYME SUPPLEMENTATION
     Dosage: 600 MG, 3X/DAY
     Route: 048
     Dates: start: 20180605
  5. MESALAZINE [Concomitant]
     Active Substance: MESALAMINE
     Indication: CROHN^S DISEASE
     Dosage: 2.4 G, 2X/DAY
     Route: 048
     Dates: start: 20180627
  6. VITAMIN D NOS [Concomitant]
     Active Substance: VITAMIN D NOS
     Indication: VITAMIN SUPPLEMENTATION
     Dosage: 400 IU, 1X/DAY
     Route: 048
     Dates: start: 202003, end: 20200818
  7. LEVOTHYROXINE. [Concomitant]
     Active Substance: LEVOTHYROXINE
     Indication: HYPOTHYROIDISM
     Dosage: 125 UG, 1X/DAY
     Route: 048
     Dates: start: 20180605, end: 20200818
  8. NOVORAPID [Concomitant]
     Active Substance: INSULIN ASPART
     Indication: DIABETES MELLITUS
     Dosage: 300 IU, AS NEEDED
     Route: 058
     Dates: start: 20180627, end: 20200818
  9. ISOPHANE INSULIN [Concomitant]
     Active Substance: INSULIN NOS
     Indication: DIABETES MELLITUS
     Dosage: 300 IU, 2X/DAY
     Route: 058
     Dates: start: 20180627

REACTIONS (1)
  - Haemoptysis [Fatal]

NARRATIVE: CASE EVENT DATE: 20200817
